FAERS Safety Report 5913055-X (Version None)
Quarter: 2008Q4

REPORT INFORMATION
  Report Type: 
  Country: None (occurrence: None)
  Receive Date: 20081008
  Receipt Date: 20081008
  Transmission Date: 20090506
  Serious: Yes (Other)
  Sender: FDA-Public Use
  Company Number: None

PATIENT
  Age: 10 Month
  Sex: Male
  Weight: 11.3399 kg

DRUGS (2)
  1. C-PHEN DM DROPS 30 ML BOCA PHARMACAL INC [Suspect]
     Indication: COUGH
     Dosage: 1/2 ML 3 TIMES PER DAY PO
     Route: 048
     Dates: start: 20080930, end: 20081004
  2. C-PHEN DM DROPS 30 ML BOCA PHARMACAL INC [Suspect]
     Indication: NASOPHARYNGITIS
     Dosage: 1/2 ML 3 TIMES PER DAY PO
     Route: 048
     Dates: start: 20080930, end: 20081004

REACTIONS (4)
  - DRUG PRESCRIBING ERROR [None]
  - INSOMNIA [None]
  - IRRITABILITY [None]
  - MEDICATION ERROR [None]
